FAERS Safety Report 16933674 (Version 1)
Quarter: 2019Q4

REPORT INFORMATION
  Report Type: Spontaneous
  Country: NL (occurrence: NL)
  Receive Date: 20191018
  Receipt Date: 20191018
  Transmission Date: 20200122
  Serious: Yes (Other)
  Sender: FDA-Public Use
  Company Number: NL-TEVA-2019-NL-1123057

PATIENT
  Age: 57 Year
  Sex: Female
  Weight: 112 kg

DRUGS (7)
  1. LANOXIN [Interacting]
     Active Substance: DIGOXIN
     Indication: ARRHYTHMIA
     Dosage: 1 TIME PER DAY 1 DOSAGE FORMS
     Route: 065
     Dates: start: 20190527, end: 20190810
  2. FUROXEMINE [FUROSEMIDE] [Interacting]
     Active Substance: FUROSEMIDE
     Indication: PRODUCT USED FOR UNKNOWN INDICATION
     Route: 065
  3. PANTAPRAZOLOL [Concomitant]
  4. METAPROLOL [Concomitant]
     Active Substance: METOPROLOL
  5. SPIRONOLACTONE. [Suspect]
     Active Substance: SPIRONOLACTONE
     Indication: PRODUCT USED FOR UNKNOWN INDICATION
     Route: 065
  6. ELIQUIS [Concomitant]
     Active Substance: APIXABAN
  7. PERINDOPRI [Concomitant]

REACTIONS (5)
  - Condition aggravated [Recovered/Resolved with Sequelae]
  - Arrhythmia [Recovered/Resolved with Sequelae]
  - Drug interaction [Recovered/Resolved with Sequelae]
  - Neurologic neglect syndrome [Recovered/Resolved]
  - Liver disorder [Recovered/Resolved with Sequelae]

NARRATIVE: CASE EVENT DATE: 20190527
